FAERS Safety Report 6370520-1 (Version None)
Quarter: 2009Q3

REPORT INFORMATION
  Report Type: 
  Country: None (occurrence: None)
  Receive Date: 20090923
  Receipt Date: 20090921
  Transmission Date: 20100115
  Serious: Yes (Other)
  Sender: FDA-Public Use
  Company Number: A0798595A

PATIENT
  Age: 49 Year
  Sex: Female

DRUGS (5)
  1. ADVAIR HFA [Suspect]
     Indication: ASTHMA
     Dosage: 1PUFF TWICE PER DAY
     Route: 055
     Dates: start: 20090401
  2. PROAIR HFA [Concomitant]
  3. SINGULAIR [Concomitant]
  4. LASIX [Concomitant]
  5. LISINOPRIL [Concomitant]

REACTIONS (4)
  - ASTHMA [None]
  - DEVICE INEFFECTIVE [None]
  - ILL-DEFINED DISORDER [None]
  - PRODUCT QUALITY ISSUE [None]
